FAERS Safety Report 9520075 (Version 1)
Quarter: 2013Q3

REPORT INFORMATION
  Report Type: Spontaneous
  Country: DE (occurrence: DE)
  Receive Date: 20130912
  Receipt Date: 20130912
  Transmission Date: 20140515
  Serious: Yes (Other)
  Sender: FDA-Public Use
  Company Number: PHHY2013DE098483

PATIENT
  Age: 19 Year
  Sex: Male

DRUGS (1)
  1. RITALINE [Suspect]
     Dosage: UNK UKN, UNK

REACTIONS (4)
  - Joint abscess [Unknown]
  - Fistula [Unknown]
  - Groin abscess [Unknown]
  - Subcutaneous abscess [Unknown]
